FAERS Safety Report 7386252-7 (Version None)
Quarter: 2011Q1

REPORT INFORMATION
  Report Type: 
  Country: None (occurrence: None)
  Receive Date: 20110329
  Receipt Date: 20110329
  Transmission Date: 20110831
  Serious: Yes (Death)
  Sender: FDA-Public Use
  Company Number: None

PATIENT
  Age: 18 Year
  Sex: Female
  Weight: 88.905 kg

DRUGS (1)
  1. CYCLESSA [Suspect]
     Indication: CONTRACEPTION
     Dosage: ONCE A DAILY PO
     Route: 048
     Dates: start: 20100228, end: 20100517

REACTIONS (1)
  - THROMBOSIS [None]
